FAERS Safety Report 22652662 (Version 1)
Quarter: 2023Q2

REPORT INFORMATION
  Report Type: Spontaneous
  Country: US (occurrence: US)
  Receive Date: 20230629
  Receipt Date: 20230629
  Transmission Date: 20230722
  Serious: Yes (Hospitalization, Other)
  Sender: FDA-Public Use
  Company Number: US-QILU PHARMACEUTICAL (HAINAN) CO.  LTD.-QLH-000097-2023

PATIENT
  Age: 68 Year
  Sex: Male

DRUGS (6)
  1. OXALIPLATIN [Suspect]
     Active Substance: OXALIPLATIN
     Indication: Colon cancer stage III
     Route: 065
  2. CAPECITABINE [Suspect]
     Active Substance: CAPECITABINE
     Indication: Colon cancer stage III
     Route: 065
  3. CIPROFLOXACIN [Concomitant]
     Active Substance: CIPROFLOXACIN
     Route: 065
  4. METRONIDAZOLE [Concomitant]
     Active Substance: METRONIDAZOLE
     Route: 065
  5. ONDANSETRON [Concomitant]
     Active Substance: ONDANSETRON
     Indication: Nausea
     Route: 042
  6. MORPHINE [Concomitant]
     Active Substance: MORPHINE
     Route: 065

REACTIONS (1)
  - Aortic thrombosis [Unknown]
